FAERS Safety Report 6082217-6 (Version None)
Quarter: 2009Q1

REPORT INFORMATION
  Report Type: 
  Country: None (occurrence: None)
  Receive Date: 20090218
  Receipt Date: 20090213
  Transmission Date: 20090719
  Serious: Yes (Other)
  Sender: FDA-Public Use
  Company Number: B0559222A

PATIENT
  Age: 10 Year
  Sex: Male

DRUGS (5)
  1. RELENZA [Suspect]
     Indication: INFLUENZA
     Dosage: 10MG TWICE PER DAY
     Route: 055
     Dates: start: 20090126
  2. CALONAL [Concomitant]
     Route: 065
     Dates: start: 20090101, end: 20090201
  3. CLARITHROMYCIN [Concomitant]
     Route: 048
     Dates: start: 20090126, end: 20090129
  4. MUCODYNE [Concomitant]
     Route: 048
     Dates: start: 20090126, end: 20090129
  5. MUCOSOLVAN [Concomitant]
     Route: 048
     Dates: start: 20090126, end: 20090129

REACTIONS (2)
  - BODY TEMPERATURE [None]
  - DELIRIUM [None]
